FAERS Safety Report 7487479-6 (Version None)
Quarter: 2011Q2

REPORT INFORMATION
  Report Type: 
  Country: None (occurrence: None)
  Receive Date: 20110510
  Receipt Date: 20110425
  Transmission Date: 20111010
  Serious: Yes (Other)
  Sender: FDA-Public Use
  Company Number: AUR-APL-2011-01506

PATIENT
  Age: 43 Year
  Sex: Male
  Weight: 180.68 kg

DRUGS (13)
  1. FISH OIL [Concomitant]
  2. HYDROCHLOROTHIAZIDE [Suspect]
     Dosage: 25MG-DAILY
  3. PHENTERMINE [Suspect]
     Dosage: 37.5MG-BID
  4. CNNAMON [Concomitant]
  5. GARLIC [Concomitant]
  6. NEBIVOLOL HCL [Suspect]
     Dosage: 10MG-DAILY
  7. SIMVASTATIN [Concomitant]
  8. ASPIRIN [Concomitant]
  9. KELP [Concomitant]
  10. FERROUS SULFATE TAB [Concomitant]
  11. NORVASC [Suspect]
     Indication: HYPERTENSION
     Dosage: 10MG-DAILY-ORAL
     Route: 048
     Dates: start: 20110201
  12. COENZYME Q10 [Concomitant]
  13. MULTI-VITAMIN [Concomitant]

REACTIONS (14)
  - BLINDNESS UNILATERAL [None]
  - WHITE BLOOD CELL COUNT INCREASED [None]
  - OEDEMA PERIPHERAL [None]
  - CATARACT [None]
  - DRUG INTERACTION [None]
  - ANHEDONIA [None]
  - LIMB INJURY [None]
  - WEIGHT INCREASED [None]
  - FOOT FRACTURE [None]
  - MIDDLE INSOMNIA [None]
  - CONDITION AGGRAVATED [None]
  - GOUT [None]
  - ERYTHEMA [None]
  - BLOOD PRESSURE INADEQUATELY CONTROLLED [None]
